FAERS Safety Report 13076587 (Version 3)
Quarter: 2017Q1

REPORT INFORMATION
  Report Type: Spontaneous
  Country: US (occurrence: US)
  Receive Date: 20161230
  Receipt Date: 20170131
  Transmission Date: 20170428
  Serious: Yes (Hospitalization, Other)
  Sender: FDA-Public Use
  Company Number: US-JNJFOC-20161205832

PATIENT
  Age: 56 Year
  Sex: Female

DRUGS (6)
  1. AMIODARONE [Concomitant]
     Active Substance: AMIODARONE
     Indication: HYPERTENSION
     Route: 065
  2. ASPIRIN. [Suspect]
     Active Substance: ASPIRIN
     Indication: PRODUCT USED FOR UNKNOWN INDICATION
     Route: 048
     Dates: end: 20150807
  3. METOPROLOL. [Concomitant]
     Active Substance: METOPROLOL
     Indication: ATRIAL FIBRILLATION
     Route: 065
  4. FUROSEMIDE. [Concomitant]
     Active Substance: FUROSEMIDE
     Indication: PRODUCT USED FOR UNKNOWN INDICATION
     Route: 065
  5. XARELTO [Suspect]
     Active Substance: RIVAROXABAN
     Indication: CEREBROVASCULAR ACCIDENT PROPHYLAXIS
     Route: 048
     Dates: start: 20150215, end: 20150807
  6. XARELTO [Suspect]
     Active Substance: RIVAROXABAN
     Indication: ATRIAL FIBRILLATION
     Route: 048
     Dates: start: 20150215, end: 20150807

REACTIONS (6)
  - Gastrointestinal haemorrhage [Recovered/Resolved]
  - Anxiety [Unknown]
  - Contusion [Unknown]
  - Stroke in evolution [Unknown]
  - Atrial fibrillation [Unknown]
  - Depression [Unknown]

NARRATIVE: CASE EVENT DATE: 20150807
